FAERS Safety Report 17152143 (Version 1)
Quarter: 2019Q4

REPORT INFORMATION
  Report Type: Spontaneous
  Country: US (occurrence: US)
  Receive Date: 20191213
  Receipt Date: 20191213
  Transmission Date: 20200122
  Serious: No
  Sender: FDA-Public Use
  Company Number: US-009507513-1912USA004044

PATIENT
  Sex: Female

DRUGS (3)
  1. OVIDREL [Concomitant]
     Active Substance: CHORIOGONADOTROPIN ALFA
  2. FOLLISTIM AQ [Suspect]
     Active Substance: FOLLITROPIN
     Indication: ANOVULATORY CYCLE
  3. FOLLISTIM AQ [Suspect]
     Active Substance: FOLLITROPIN
     Indication: INFERTILITY FEMALE
     Dosage: 75 UNITS, QPM; STRENGHT: 900 IU/1.08 ML
     Route: 058
     Dates: start: 20191026

REACTIONS (1)
  - Injection site erythema [Unknown]

NARRATIVE: CASE EVENT DATE: 2019
